FAERS Safety Report 13523566 (Version 1)
Quarter: 2017Q2

REPORT INFORMATION
  Report Type: Spontaneous
  Country: US (occurrence: US)
  Receive Date: 20170508
  Receipt Date: 20170508
  Transmission Date: 20170830
  Serious: No
  Sender: FDA-Public Use
  Company Number: US-VIFOR (INTERNATIONAL) INC.-VIT-2017-01924

PATIENT
  Age: 88 Year
  Sex: Male

DRUGS (19)
  1. LIPITOR [Concomitant]
     Active Substance: ATORVASTATIN CALCIUM
  2. LASIX [Concomitant]
     Active Substance: FUROSEMIDE
  3. PROTONIX [Concomitant]
     Active Substance: PANTOPRAZOLE SODIUM
  4. PLAVIX [Concomitant]
     Active Substance: CLOPIDOGREL BISULFATE
  5. CLARITIN [Concomitant]
     Active Substance: LORATADINE
  6. SENNA ALEXANDRINA [Concomitant]
     Active Substance: SENNA LEAF
  7. ALLOPURINOL. [Concomitant]
     Active Substance: ALLOPURINOL
  8. GLYCERYL TRINITRATE [Concomitant]
     Active Substance: NITROGLYCERIN
  9. COLECALCIFEROL [Concomitant]
     Active Substance: CHOLECALCIFEROL
  10. ZETIA [Concomitant]
     Active Substance: EZETIMIBE
  11. CENTRUM ADULTS [Concomitant]
  12. SYNTHROID [Concomitant]
     Active Substance: LEVOTHYROXINE SODIUM
  13. TRAZODONE HYDROCHLORIDE. [Concomitant]
     Active Substance: TRAZODONE HYDROCHLORIDE
  14. TRICOR [Concomitant]
     Active Substance: FENOFIBRATE
  15. VELTASSA [Suspect]
     Active Substance: PATIROMER
     Indication: HYPERKALAEMIA
     Route: 048
     Dates: start: 20161205, end: 20170216
  16. COZAAR [Concomitant]
     Active Substance: LOSARTAN POTASSIUM
  17. ACETYLSALICYLIC ACID [Concomitant]
     Active Substance: ASPIRIN
  18. ARANESP [Concomitant]
     Active Substance: DARBEPOETIN ALFA
  19. METOPROLOL TARTRATE. [Concomitant]
     Active Substance: METOPROLOL TARTRATE

REACTIONS (12)
  - Anxiety [Unknown]
  - Flatulence [Unknown]
  - Fatigue [Unknown]
  - Cough [Not Recovered/Not Resolved]
  - Retching [Unknown]
  - Viral upper respiratory tract infection [Unknown]
  - Adverse event [Unknown]
  - Pruritus [Unknown]
  - Decreased appetite [Unknown]
  - Thyroid hormones decreased [Unknown]
  - Diarrhoea [Unknown]
  - Nausea [Unknown]

NARRATIVE: CASE EVENT DATE: 20170120
